FAERS Safety Report 16678509 (Version 2)
Quarter: 2019Q4

REPORT INFORMATION
  Report Type: Report from Study
  Country: US (occurrence: US)
  Receive Date: 20190807
  Receipt Date: 20191022
  Transmission Date: 20200122
  Serious: Yes (Other)
  Sender: FDA-Public Use
  Company Number: US-ROCHE-2369042

PATIENT
  Age: 70 Year
  Sex: Female
  Weight: 49.03 kg

DRUGS (3)
  1. PREDNISONE. [Concomitant]
     Active Substance: PREDNISONE
     Route: 065
  2. ASPIRIN [ACETYLSALICYLIC ACID] [Concomitant]
     Active Substance: ASPIRIN
  3. ACTEMRA [Suspect]
     Active Substance: TOCILIZUMAB
     Indication: TEMPORAL ARTERITIS
     Dosage: INJECT 162MG SUBCUTANEOUSLY EVERY 7 DAY(S)
     Route: 058
     Dates: start: 201808

REACTIONS (7)
  - Malaise [Unknown]
  - Body height decreased [Recovered/Resolved]
  - Compression fracture [Recovering/Resolving]
  - Spinal compression fracture [Recovering/Resolving]
  - Pain [Not Recovered/Not Resolved]
  - Arthralgia [Not Recovered/Not Resolved]
  - Needle issue [Unknown]

NARRATIVE: CASE EVENT DATE: 201905
